FAERS Safety Report 8878399 (Version 1)
Quarter: 2012Q4

REPORT INFORMATION
  Report Type: 
  Country: US (occurrence: US)
  Receive Date: 20121025
  Receipt Date: 20121025
  Transmission Date: 20130627
  Serious: No
  Sender: FDA-Public Use
  Company Number: US-AMGEN-USASP2012022281

PATIENT
  Age: 56 Year
  Sex: Female
  Weight: 52.15 kg

DRUGS (5)
  1. ENBREL [Suspect]
     Indication: PRODUCT USED FOR UNKNOWN INDICATION
     Dosage: 50 mg, qwk
     Route: 058
  2. PLAQUENIL                          /00072602/ [Concomitant]
     Dosage: 200 mg, UNK
  3. CALCIUM + VIT D [Concomitant]
     Dosage: UNK
  4. VITAMIN E                          /00110501/ [Concomitant]
  5. OMEGA 3                            /01334101/ [Concomitant]
     Dosage: 300 mg, UNK

REACTIONS (2)
  - Sinusitis [Unknown]
  - Injection site pain [Unknown]
